FAERS Safety Report 16629966 (Version 3)
Quarter: 2019Q3

REPORT INFORMATION
  Report Type: Spontaneous
  Country: CA (occurrence: CA)
  Receive Date: 20190725
  Receipt Date: 20190905
  Transmission Date: 20191004
  Serious: Yes (Other)
  Sender: FDA-Public Use
  Company Number: PHHY2019CA172023

PATIENT
  Sex: Female

DRUGS (1)
  1. SANDOZ ESTRADIOL DERM [Suspect]
     Active Substance: ESTRADIOL
     Indication: PRODUCT USED FOR UNKNOWN INDICATION
     Dosage: UNK
     Route: 062

REACTIONS (2)
  - Haemorrhage [Not Recovered/Not Resolved]
  - Product adhesion issue [Unknown]
